FAERS Safety Report 10268625 (Version 1)
Quarter: 2014Q2

REPORT INFORMATION
  Report Type: Spontaneous
  Country: US (occurrence: US)
  Receive Date: 20140630
  Receipt Date: 20140630
  Transmission Date: 20141212
  Serious: No
  Sender: FDA-Public Use
  Company Number: US-PFIZER INC-2014176752

PATIENT
  Age: 57 Year
  Sex: Female

DRUGS (4)
  1. PROTONIX [Suspect]
     Dosage: 40 MG, DAILY AS NEEDED
     Route: 048
  2. COSOPT [Concomitant]
     Dosage: UNK
  3. ALPHAGAN [Concomitant]
     Dosage: UNK
  4. SULFASALAZINE [Concomitant]
     Dosage: 500 MG, UNK

REACTIONS (2)
  - Drug hypersensitivity [Unknown]
  - Off label use [Unknown]
